FAERS Safety Report 4941059-2 (Version None)
Quarter: 2006Q1

REPORT INFORMATION
  Report Type: 
  Country: None (occurrence: None)
  Receive Date: 20060313
  Receipt Date: 20060228
  Transmission Date: 20060701
  Serious: Yes (Hospitalization)
  Sender: FDA-Public Use
  Company Number: PHHO2006JP03509

PATIENT
  Age: 65 Year
  Sex: Male

DRUGS (2)
  1. DIOVAN [Suspect]
     Indication: HYPERTENSION
     Dosage: 80 MG, QD
     Route: 048
     Dates: start: 20030502, end: 20050304
  2. ASPIRIN [Concomitant]
     Indication: CEREBRAL INFARCTION
     Dates: start: 19970807, end: 20050304

REACTIONS (1)
  - NEOPLASM MALIGNANT [None]
